FAERS Safety Report 11200012 (Version 1)
Quarter: 2015Q2

REPORT INFORMATION
  Report Type: Spontaneous
  Country: US (occurrence: US)
  Receive Date: 20150618
  Receipt Date: 20150618
  Transmission Date: 20150821
  Serious: No
  Sender: FDA-Public Use
  Company Number: US-TAKEDA-2015TUS004025

PATIENT
  Age: 77 Year
  Sex: Female

DRUGS (5)
  1. METOPROLOL [Concomitant]
     Active Substance: METOPROLOL
     Dosage: UNK
     Route: 048
  2. ATORVASTATIN [Concomitant]
     Active Substance: ATORVASTATIN
     Dosage: UNK
     Route: 048
  3. VALSARTAN. [Concomitant]
     Active Substance: VALSARTAN
     Dosage: UNK
     Route: 048
  4. ULORIC [Suspect]
     Active Substance: FEBUXOSTAT
     Indication: GOUT
     Dosage: UNK
     Route: 048
     Dates: start: 201311
  5. LEVOTHORAMAX [Concomitant]
     Indication: THYROID DISORDER
     Dosage: UNK
     Route: 048

REACTIONS (1)
  - Herpes zoster [Recovering/Resolving]

NARRATIVE: CASE EVENT DATE: 201502
